FAERS Safety Report 21527167 (Version 3)
Quarter: 2022Q4

REPORT INFORMATION
  Report Type: Spontaneous
  Country: DE (occurrence: None)
  Receive Date: 20221031
  Receipt Date: 20221128
  Transmission Date: 20230112
  Serious: Yes (Hospitalization)
  Sender: FDA-Public Use
  Company Number: DE-ROCHE-3206953

PATIENT
  Age: 84 Year
  Sex: Male

DRUGS (3)
  1. AVASTIN [Suspect]
     Active Substance: BEVACIZUMAB
     Indication: Diabetic retinal oedema
     Dosage: 12 INJECTIONS
     Route: 050
  2. AVASTIN [Suspect]
     Active Substance: BEVACIZUMAB
     Dosage: 13TH INJECTION : 0.05ML CONTAIN 1.042MG
     Route: 050
     Dates: start: 20220929
  3. LUCENTIS [Concomitant]
     Active Substance: RANIBIZUMAB
     Dosage: TOTAL 12 INJECTIONS OF AVASTIN/UCENTIS WITHOUT COMPLICATIONS

REACTIONS (4)
  - Eye inflammation [Recovered/Resolved]
  - Eye irritation [Recovered/Resolved]
  - Off label use [Unknown]
  - Product storage error [Unknown]

NARRATIVE: CASE EVENT DATE: 20221005
